FAERS Safety Report 8172254-X (Version None)
Quarter: 2012Q1

REPORT INFORMATION
  Report Type: 
  Country: None (occurrence: None)
  Receive Date: 20120229
  Receipt Date: 20120221
  Transmission Date: 20120608
  Serious: Yes (Other)
  Sender: FDA-Public Use
  Company Number: US-BIOGENIDEC-2011BI037843

PATIENT
  Age: 27 Year
  Sex: Male

DRUGS (2)
  1. AVONEX [Suspect]
     Indication: MULTIPLE SCLEROSIS
     Route: 030
     Dates: start: 20010125, end: 20080220
  2. AVONEX [Suspect]
     Route: 030
     Dates: start: 20080512

REACTIONS (5)
  - MUSCLE SPASTICITY [None]
  - HYPOAESTHESIA [None]
  - PARAESTHESIA [None]
  - HYPERTONIC BLADDER [None]
  - COLITIS ULCERATIVE [None]
